FAERS Safety Report 5250679-X (Version None)
Quarter: 2007Q1

REPORT INFORMATION
  Report Type: 
  Country: None (occurrence: None)
  Receive Date: 20070228
  Receipt Date: 20060707
  Transmission Date: 20070707
  Serious: No
  Sender: FDA-Public Use
  Company Number: US-GLAXOSMITHKLINE-A0609486A

PATIENT
  Age: 55 Year
  Sex: Male
  Weight: 90.9 kg

DRUGS (7)
  1. LAMICTAL [Suspect]
     Indication: BIPOLAR DISORDER
     Route: 048
     Dates: start: 20060401
  2. CITALOPRAM HYDROBROMIDE [Concomitant]
     Indication: DEPRESSION
     Dosage: 40MG UNKNOWN
     Route: 048
  3. ZOCOR [Concomitant]
     Dosage: 80MG UNKNOWN
     Route: 048
  4. ATENOLOL [Concomitant]
     Dosage: 50MG UNKNOWN
     Route: 048
  5. POTASSIUM CITRATE [Concomitant]
     Dosage: 10MEQ UNKNOWN
     Route: 048
  6. FLOMAX [Concomitant]
     Dosage: 4MG UNKNOWN
     Route: 048
  7. ASPIRIN [Concomitant]

REACTIONS (1)
  - BLEPHAROSPASM [None]
